FAERS Safety Report 7482999-2 (Version None)
Quarter: 2011Q2

REPORT INFORMATION
  Report Type: 
  Country: None (occurrence: None)
  Receive Date: 20110516
  Receipt Date: 20110414
  Transmission Date: 20111010
  Serious: No
  Sender: FDA-Public Use
  Company Number: US-BAYER-2011-033506

PATIENT
  Age: 73 Year
  Sex: Male

DRUGS (2)
  1. CORTICOSTEROIDS [Concomitant]
  2. ALEVE (CAPLET) [Suspect]
     Indication: ARTHRITIS
     Dosage: 440 MG, UNK
     Route: 048
     Dates: start: 20101101, end: 20101101

REACTIONS (2)
  - THROAT IRRITATION [None]
  - FOREIGN BODY [None]
